FAERS Safety Report 5924936-5 (Version None)
Quarter: 2008Q4

REPORT INFORMATION
  Report Type: 
  Country: None (occurrence: None)
  Receive Date: 20081020
  Receipt Date: 20081020
  Transmission Date: 20090506
  Serious: Yes (Hospitalization)
  Sender: FDA-Public Use
  Company Number: None

PATIENT
  Age: 79 Year
  Sex: Female

DRUGS (2)
  1. CELECOXIB [Suspect]
     Indication: ANALGESIC INTERVENTION SUPPORTIVE THERAPY
  2. ASPIRIN [Suspect]

REACTIONS (7)
  - ANAEMIA [None]
  - DUODENITIS [None]
  - DYSPNOEA EXERTIONAL [None]
  - GASTRITIS [None]
  - GASTRITIS EROSIVE [None]
  - GASTROINTESTINAL HAEMORRHAGE [None]
  - PALPITATIONS [None]
